FAERS Safety Report 8477213-5 (Version None)
Quarter: 2012Q2

REPORT INFORMATION
  Report Type: 
  Country: None (occurrence: None)
  Receive Date: 20120625
  Receipt Date: 20120625
  Transmission Date: 20120825
  Serious: Yes (Other)
  Sender: FDA-Public Use
  Company Number: None

PATIENT
  Sex: Female
  Weight: 43.5453 kg

DRUGS (1)
  1. CLOPIDOGREL [Suspect]
     Dosage: 75 MG QD PO
     Route: 048
     Dates: start: 20120525, end: 20120609

REACTIONS (3)
  - PALPITATIONS [None]
  - PRODUCT SUBSTITUTION ISSUE [None]
  - DIZZINESS [None]
